FAERS Safety Report 4733447-4 (Version None)
Quarter: 2005Q3

REPORT INFORMATION
  Report Type: 
  Country: None (occurrence: None)
  Receive Date: 20050803
  Receipt Date: 20050722
  Transmission Date: 20060218
  Serious: Yes (Hospitalization)
  Sender: FDA-Public Use
  Company Number: US-JNJFOC-20050705328

PATIENT
  Sex: Female
  Weight: 88.45 kg

DRUGS (12)
  1. DURAGESIC-100 [Suspect]
     Route: 062
     Dates: start: 20000101
  2. TORSEMIDE [Concomitant]
     Route: 048
     Dates: start: 20010101
  3. NORVASC [Concomitant]
     Route: 048
     Dates: start: 20020101
  4. CAPTOPRIL [Concomitant]
     Route: 048
     Dates: start: 20030101
  5. TOPROL-XL [Concomitant]
     Route: 048
     Dates: start: 20030101
  6. COUMADIN [Concomitant]
     Indication: ANTICOAGULANT THERAPY
     Route: 048
     Dates: start: 20020101
  7. PREDNISONE [Concomitant]
     Route: 048
     Dates: start: 20000101
  8. IMDUR [Concomitant]
     Indication: VASODILATATION
     Route: 048
     Dates: start: 20030101
  9. NIFREX [Concomitant]
     Route: 048
     Dates: start: 20030101
  10. NIFREX [Concomitant]
     Route: 048
     Dates: start: 20030101
  11. NEXIUM [Concomitant]
     Route: 048
     Dates: start: 20030101
  12. POTASSIUM CHLORIDE [Concomitant]
     Indication: ELECTROLYTE IMBALANCE
     Route: 048
     Dates: start: 20041001

REACTIONS (7)
  - CHEST PAIN [None]
  - CORONARY ARTERIAL STENT INSERTION [None]
  - ELECTROLYTE IMBALANCE [None]
  - POST PROCEDURAL HAEMORRHAGE [None]
  - RIB FRACTURE [None]
  - THERMAL BURN [None]
  - TRIPLE VESSEL BYPASS GRAFT [None]
